FAERS Safety Report 18418904 (Version 1)
Quarter: 2020Q4

REPORT INFORMATION
  Report Type: Spontaneous
  Country: US (occurrence: US)
  Receive Date: 20201022
  Receipt Date: 20201022
  Transmission Date: 20210114
  Serious: Yes (Disabling)
  Sender: FDA-Public Use
  Company Number: None

PATIENT
  Age: 64 Year
  Sex: Male
  Weight: 83.25 kg

DRUGS (8)
  1. OXYCODONE-ACETAMINOPHEN 10/325 [Suspect]
     Active Substance: ACETAMINOPHEN\OXYCODONE HYDROCHLORIDE
     Indication: OSTEOARTHRITIS
     Dosage: ?          QUANTITY:210 TABLET(S);?
     Route: 048
     Dates: start: 20201020, end: 20201021
  2. BYSTOLIC [Concomitant]
     Active Substance: NEBIVOLOL HYDROCHLORIDE
  3. AMLODOPINE-BENAZAPRIL [Concomitant]
  4. LEVOTHYROXINE. [Concomitant]
     Active Substance: LEVOTHYROXINE
  5. OXYCODONE-ACETAMINOPHEN 10/325 [Suspect]
     Active Substance: ACETAMINOPHEN\OXYCODONE HYDROCHLORIDE
     Indication: ARTHRALGIA
     Dosage: ?          QUANTITY:210 TABLET(S);?
     Route: 048
     Dates: start: 20201020, end: 20201021
  6. JANUVIA [Concomitant]
     Active Substance: SITAGLIPTIN PHOSPHATE
  7. ROSUVASTATIN. [Concomitant]
     Active Substance: ROSUVASTATIN
  8. HCTZ [Concomitant]
     Active Substance: HYDROCHLOROTHIAZIDE

REACTIONS (11)
  - Arthralgia [None]
  - Diarrhoea [None]
  - Drug ineffective [None]
  - Nausea [None]
  - Vomiting [None]
  - Withdrawal syndrome [None]
  - Hyperhidrosis [None]
  - Osteoarthritis [None]
  - Abdominal pain upper [None]
  - Discomfort [None]
  - Manufacturing laboratory analytical testing issue [None]

NARRATIVE: CASE EVENT DATE: 20201020
